FAERS Safety Report 11584692 (Version 1)
Quarter: 2015Q4

REPORT INFORMATION
  Report Type: Spontaneous
  Country: JP (occurrence: JP)
  Receive Date: 20151001
  Receipt Date: 20151001
  Transmission Date: 20160304
  Serious: Yes (Other)
  Sender: FDA-Public Use
  Company Number: JP-AMGEN-JPNSP2015101600

PATIENT
  Age: 79 Year
  Sex: Female

DRUGS (1)
  1. ENBREL [Suspect]
     Active Substance: ETANERCEPT
     Indication: PRODUCT USED FOR UNKNOWN INDICATION
     Dosage: 50 MG, UNK
     Route: 058

REACTIONS (11)
  - Upper limb fracture [Unknown]
  - Lumbar spinal stenosis [Unknown]
  - Dental caries [Unknown]
  - Weight decreased [Unknown]
  - Dizziness [Unknown]
  - Lung neoplasm malignant [Unknown]
  - Cataract [Unknown]
  - Cough [Unknown]
  - Chest pain [Unknown]
  - Glaucoma [Unknown]
  - Productive cough [Unknown]

NARRATIVE: CASE EVENT DATE: 2014
